FAERS Safety Report 6579481-3 (Version None)
Quarter: 2010Q1

REPORT INFORMATION
  Report Type: 
  Country: None (occurrence: None)
  Receive Date: 20100212
  Receipt Date: 20100205
  Transmission Date: 20100710
  Serious: Yes (Other)
  Sender: FDA-Public Use
  Company Number: VN-ASTRAZENECA-2010SE05398

PATIENT
  Age: 25 Year
  Sex: Male

DRUGS (2)
  1. MARCAIN SPINAL HEAVY 0.5% [Suspect]
     Indication: SPINAL ANAESTHESIA
     Route: 037
     Dates: start: 20100125, end: 20100125
  2. FENTANYL-100 [Concomitant]
     Indication: INDUCTION OF ANAESTHESIA
     Route: 037
     Dates: start: 20100125, end: 20100125

REACTIONS (1)
  - ANAESTHETIC COMPLICATION [None]
